FAERS Safety Report 13363935 (Version 1)
Quarter: 2017Q1

REPORT INFORMATION
  Report Type: Report from Study
  Country: US (occurrence: US)
  Receive Date: 20170323
  Receipt Date: 20170323
  Transmission Date: 20170429
  Serious: Yes (Hospitalization)
  Sender: FDA-Public Use
  Company Number: US-JNJFOC-20161026097

PATIENT
  Age: 63 Year
  Sex: Male

DRUGS (13)
  1. CYANOCOBALAMIN. [Concomitant]
     Active Substance: CYANOCOBALAMIN
  2. IMBRUVICA [Suspect]
     Active Substance: IBRUTINIB
     Indication: B-CELL SMALL LYMPHOCYTIC LYMPHOMA
     Route: 048
     Dates: start: 20170301, end: 201703
  3. COLACE [Concomitant]
     Active Substance: DOCUSATE SODIUM
  4. COMPAZINE [Concomitant]
     Active Substance: PROCHLORPERAZINE MALEATE
  5. ZYLOPRIM [Concomitant]
     Active Substance: ALLOPURINOL
  6. ZOCOR [Concomitant]
     Active Substance: SIMVASTATIN
  7. IMBRUVICA [Suspect]
     Active Substance: IBRUTINIB
     Indication: B-CELL SMALL LYMPHOCYTIC LYMPHOMA
     Route: 048
     Dates: start: 20160719, end: 201610
  8. IMBRUVICA [Suspect]
     Active Substance: IBRUTINIB
     Indication: CHRONIC LYMPHOCYTIC LEUKAEMIA
     Route: 048
     Dates: start: 20170301, end: 201703
  9. IMBRUVICA [Suspect]
     Active Substance: IBRUTINIB
     Indication: CHRONIC LYMPHOCYTIC LEUKAEMIA
     Route: 048
     Dates: start: 20160719, end: 201610
  10. ALUMINIUM HYDROXIDE-MAGNESIUM CARBONATE GEL [Concomitant]
  11. TAMBOCOR [Concomitant]
     Active Substance: FLECAINIDE ACETATE
  12. ASPIRIN. [Concomitant]
     Active Substance: ASPIRIN
  13. LOVAZA [Concomitant]
     Active Substance: OMEGA-3-ACID ETHYL ESTERS

REACTIONS (10)
  - Fall [Unknown]
  - Productive cough [Recovering/Resolving]
  - Abdominal pain [Unknown]
  - Heart rate increased [Unknown]
  - Neutropenia [Unknown]
  - Dizziness [Unknown]
  - Pneumonia [Unknown]
  - Pain [Unknown]
  - Atrial fibrillation [Unknown]
  - Withdrawal syndrome [Unknown]

NARRATIVE: CASE EVENT DATE: 2016
